FAERS Safety Report 6244946-0 (Version None)
Quarter: 2009Q2

REPORT INFORMATION
  Report Type: 
  Country: None (occurrence: None)
  Receive Date: 20090625
  Receipt Date: 20090619
  Transmission Date: 20091009
  Serious: Yes (Life-Threatening, Hospitalization)
  Sender: FDA-Public Use
  Company Number: PHHY2009HR25021

PATIENT

DRUGS (3)
  1. LEPONEX [Suspect]
     Indication: SCHIZOPHRENIA
     Dosage: 2X100 MG
     Route: 048
     Dates: start: 19950101
  2. HALDOL [Concomitant]
     Dosage: 2X10 MG
     Route: 048
  3. AKINETON [Concomitant]
     Dosage: 1 TBL PER OS
     Route: 048

REACTIONS (7)
  - ASCITES [None]
  - BLOOD CHOLESTEROL INCREASED [None]
  - BLOOD TRIGLYCERIDES INCREASED [None]
  - CONGENITAL CYSTIC KIDNEY DISEASE [None]
  - DIABETES MELLITUS [None]
  - GLYCOSYLATED HAEMOGLOBIN INCREASED [None]
  - PANCREATITIS [None]
